FAERS Safety Report 9921163 (Version 1)
Quarter: 2014Q1

REPORT INFORMATION
  Report Type: Report from Study
  Country: US (occurrence: US)
  Receive Date: 20140225
  Receipt Date: 20140225
  Transmission Date: 20141002
  Serious: Yes (Hospitalization)
  Sender: FDA-Public Use
  Company Number: US-JNJFOC-20140212767

PATIENT
  Age: 12 Year
  Sex: Male
  Weight: 31.5 kg

DRUGS (9)
  1. REMICADE [Suspect]
     Indication: CROHN^S DISEASE
     Route: 042
     Dates: start: 20120921
  2. 5-ASA [Concomitant]
     Route: 048
  3. PREDNISONE [Concomitant]
     Route: 065
  4. BUDESONIDE [Concomitant]
     Route: 065
  5. CHOLECALCIFEROL [Concomitant]
     Route: 065
  6. HYOSCYAMINE [Concomitant]
     Route: 065
  7. OMEPRAZOLE [Concomitant]
     Route: 065
  8. MULTIVITAMINS [Concomitant]
     Route: 065
  9. OMEGA 3 [Concomitant]
     Route: 065

REACTIONS (1)
  - Crohn^s disease [Recovered/Resolved]
